FAERS Safety Report 16164737 (Version 1)
Quarter: 2019Q2

REPORT INFORMATION
  Report Type: Spontaneous
  Country: DE (occurrence: DE)
  Receive Date: 20190405
  Receipt Date: 20190405
  Transmission Date: 20190711
  Serious: Yes (Death, Hospitalization, Other)
  Sender: FDA-Public Use
  Company Number: DE-BRISTOL-MYERS SQUIBB COMPANY-BMS-2019-033166

PATIENT
  Age: 74 Year
  Sex: Male

DRUGS (4)
  1. TOREM COR [Concomitant]
     Active Substance: TORSEMIDE
     Indication: PRODUCT USED FOR UNKNOWN INDICATION
     Dosage: 2 AGU/ML
     Route: 048
  2. SIMVASTATIN. [Concomitant]
     Active Substance: SIMVASTATIN
     Indication: PRODUCT USED FOR UNKNOWN INDICATION
     Dosage: 20 MILLIGRAM
     Route: 048
  3. METOPROLOL. [Concomitant]
     Active Substance: METOPROLOL
     Indication: PRODUCT USED FOR UNKNOWN INDICATION
     Dosage: 47.5 MILLIGRAM
     Route: 048
  4. ELIQUIS [Suspect]
     Active Substance: APIXABAN
     Indication: THROMBOSIS PROPHYLAXIS
     Dosage: 5 MILLIGRAM, BID
     Route: 048
     Dates: start: 201606, end: 20181002

REACTIONS (8)
  - Cerebral haemorrhage [Fatal]
  - Adverse reaction [Fatal]
  - Coma [Fatal]
  - Disturbance in attention [Fatal]
  - Intraventricular haemorrhage [Fatal]
  - Hemiparesis [Fatal]
  - Somnolence [Fatal]
  - Aphasia [Fatal]

NARRATIVE: CASE EVENT DATE: 201810
